FAERS Safety Report 18922759 (Version 1)
Quarter: 2021Q1

REPORT INFORMATION
  Report Type: Spontaneous
  Country: US (occurrence: US)
  Receive Date: 20210222
  Receipt Date: 20210222
  Transmission Date: 20210420
  Serious: Yes (Hospitalization)
  Sender: FDA-Public Use
  Company Number: None

PATIENT
  Age: 57 Year
  Sex: Female

DRUGS (23)
  1. DEXTROAMPHET SACCHARAT, AMPHET ASPARTATE, DEXTROAMPHET SULFATE AND AMPHET SULFAT [Concomitant]
     Active Substance: AMPHETAMINE ASPARTATE\AMPHETAMINE SULFATE\DEXTROAMPHETAMINE SACCHARATE\DEXTROAMPHETAMINE SULFATE
  2. CYMBALTA [Concomitant]
     Active Substance: DULOXETINE HYDROCHLORIDE
  3. JANUVIA [Concomitant]
     Active Substance: SITAGLIPTIN PHOSPHATE
  4. COPAXONE [Concomitant]
     Active Substance: GLATIRAMER ACETATE
  5. ENABLEX [Concomitant]
     Active Substance: DARIFENACIN HYDROBROMIDE
  6. JARDIANCE [Concomitant]
     Active Substance: EMPAGLIFLOZIN
  7. AVONEX [Suspect]
     Active Substance: INTERFERON BETA-1A
     Indication: MULTIPLE SCLEROSIS
     Dosage: ?          OTHER FREQUENCY:EVERY WEEK;?
     Route: 058
  8. BENICAR [Concomitant]
     Active Substance: OLMESARTAN MEDOXOMIL
  9. INVOKANA [Concomitant]
     Active Substance: CANAGLIFLOZIN
  10. LYRICA [Concomitant]
     Active Substance: PREGABALIN
  11. BACLOFEN. [Concomitant]
     Active Substance: BACLOFEN
  12. DICLOFENAC [Concomitant]
     Active Substance: DICLOFENAC
  13. DALFAMPRIDINE. [Suspect]
     Active Substance: DALFAMPRIDINE
     Indication: MULTIPLE SCLEROSIS
     Route: 048
  14. ADDERALL [Concomitant]
     Active Substance: AMPHETAMINE ASPARTATE\AMPHETAMINE SULFATE\DEXTROAMPHETAMINE SACCHARATE\DEXTROAMPHETAMINE SULFATE
  15. ALDACTAZIDE [Concomitant]
     Active Substance: HYDROCHLOROTHIAZIDE\SPIRONOLACTONE
  16. ARIPIPRAZOLE. [Concomitant]
     Active Substance: ARIPIPRAZOLE
  17. COPAXONE [Concomitant]
     Active Substance: GLATIRAMER ACETATE
  18. BUPRENORPHINE. [Concomitant]
     Active Substance: BUPRENORPHINE
  19. BUPROPION. [Concomitant]
     Active Substance: BUPROPION
  20. ABILIFY [Concomitant]
     Active Substance: ARIPIPRAZOLE
  21. DALFAMPRIDINE. [Concomitant]
     Active Substance: DALFAMPRIDINE
  22. FENTANYL. [Concomitant]
     Active Substance: FENTANYL
  23. LASIX [Concomitant]
     Active Substance: FUROSEMIDE

REACTIONS (2)
  - Blood pressure measurement [None]
  - Pain in extremity [None]

NARRATIVE: CASE EVENT DATE: 20210219
